FAERS Safety Report 5200935-6 (Version None)
Quarter: 2007Q1

REPORT INFORMATION
  Report Type: 
  Country: None (occurrence: None)
  Receive Date: 20070108
  Receipt Date: 20061213
  Transmission Date: 20070707
  Serious: Yes (Death)
  Sender: FDA-Public Use
  Company Number: CA-BAXTER-2006BH015064

PATIENT
  Age: 32 Year
  Sex: Female

DRUGS (1)
  1. FENTANYL CITRATE [Suspect]
     Indication: DRUG TOXICITY
     Dosage: DOSE UNIT:UNKNOWN
     Route: 042

REACTIONS (1)
  - DRUG TOXICITY [None]
